FAERS Safety Report 5649442-7 (Version None)
Quarter: 2008Q1

REPORT INFORMATION
  Report Type: 
  Country: None (occurrence: None)
  Receive Date: 20080303
  Receipt Date: 20080303
  Transmission Date: 20080703
  Serious: Yes (Other)
  Sender: FDA-Public Use
  Company Number: None

PATIENT
  Sex: Female
  Weight: 147.419 kg

DRUGS (2)
  1. NEURONTIN [Suspect]
     Indication: ARTHRALGIA
     Dates: start: 20070614, end: 20070619
  2. NEURONTIN [Suspect]
     Indication: INTERVERTEBRAL DISC DISORDER
     Dates: start: 20070614, end: 20070619

REACTIONS (5)
  - CRYING [None]
  - JOINT SWELLING [None]
  - MENTAL IMPAIRMENT [None]
  - OEDEMA PERIPHERAL [None]
  - SUICIDAL IDEATION [None]
